FAERS Safety Report 8154186-6 (Version None)
Quarter: 2012Q1

REPORT INFORMATION
  Report Type: 
  Country: None (occurrence: None)
  Receive Date: 20120103
  Receipt Date: 20111027
  Transmission Date: 20120608
  Serious: No
  Sender: FDA-Public Use
  Company Number: AE-2011-002807

PATIENT
  Age: 49 Year
  Sex: Female
  Weight: 77.1115 kg

DRUGS (13)
  1. FLUVOXAMINE MALEATE [Concomitant]
  2. VALIUM [Concomitant]
  3. REMERON (MRTAZAPINE) [Concomitant]
  4. LAMICTAL [Concomitant]
  5. RIBAVIRIN [Concomitant]
  6. GEODON [Concomitant]
  7. HALDOL (HALOPEIRDOL) [Concomitant]
  8. LITHIUM CARBONATE [Concomitant]
  9. INCIVEK [Suspect]
     Dosage: 2250 MG (750 MG,3 IN 1 D),ORAL
     Route: 048
     Dates: start: 20110803
  10. PEGINTERFERON (PEGINTERFERON ALFA-2A) [Concomitant]
  11. PREMARIN (PREMARIN PLUS) [Concomitant]
  12. VICODIN [Concomitant]
  13. FOLIC ACID [Concomitant]

REACTIONS (2)
  - DROOLING [None]
  - HYPERTROPHY [None]
